FAERS Safety Report 17325068 (Version 2)
Quarter: 2020Q1

REPORT INFORMATION
  Report Type: Spontaneous
  Country: CO (occurrence: CO)
  Receive Date: 20200127
  Receipt Date: 20200303
  Transmission Date: 20200409
  Serious: Yes (Other)
  Sender: FDA-Public Use
  Company Number: CO-PFIZER INC-2018032453

PATIENT
  Age: 11 Year
  Sex: Male

DRUGS (2)
  1. GENOTROPIN [Suspect]
     Active Substance: SOMATROPIN
     Indication: HYPOTHALAMO-PITUITARY DISORDER
     Dosage: 1.4 MG, UNK
     Route: 058
  2. GENOTROPIN [Suspect]
     Active Substance: SOMATROPIN
     Indication: GROWTH HORMONE DEFICIENCY
     Dosage: 1.2 MG, DAILY
     Route: 058

REACTIONS (4)
  - Incorrect dose administered [Unknown]
  - Device failure [Unknown]
  - Pneumonia [Unknown]
  - Product dose omission [Unknown]

NARRATIVE: CASE EVENT DATE: 20180119
